FAERS Safety Report 9684182 (Version 2)
Quarter: 2014Q2

REPORT INFORMATION
  Report Type: Spontaneous
  Country: US (occurrence: US)
  Receive Date: 20131112
  Receipt Date: 20140417
  Transmission Date: 20141212
  Serious: Yes (Hospitalization)
  Sender: FDA-Public Use
  Company Number: US-B.I. PHARMACEUTICALS,INC./RIDGEFIELD-2013-BI-36355BP

PATIENT
  Age: 71 Year
  Sex: Female
  Weight: 58.97 kg

DRUGS (12)
  1. PRADAXA [Suspect]
     Indication: ATRIAL FIBRILLATION
     Route: 065
     Dates: start: 20110711, end: 20111222
  2. DILTIAZEM [Concomitant]
     Route: 065
     Dates: start: 2007, end: 2012
  3. METOPROLOL [Concomitant]
     Route: 065
     Dates: start: 2007, end: 2012
  4. FOSAMAX [Concomitant]
     Route: 065
     Dates: start: 2007, end: 2012
  5. ALENDRONATE [Concomitant]
     Route: 065
     Dates: start: 2008, end: 2012
  6. FUROSEMIDE [Concomitant]
     Route: 065
     Dates: start: 2008, end: 2012
  7. PLAVIX [Concomitant]
     Route: 065
     Dates: start: 2010, end: 2012
  8. HYDROCHLOROTHIAZIDE [Concomitant]
     Route: 065
  9. ENALAPRIL [Concomitant]
     Route: 065
  10. CENTRUM SILVER [Concomitant]
     Route: 065
  11. VITAMIN D [Concomitant]
     Route: 065
  12. CALCIUM [Concomitant]
     Route: 065

REACTIONS (2)
  - Gastrointestinal haemorrhage [Unknown]
  - Haemorrhagic anaemia [Unknown]
